FAERS Safety Report 7127191-6 (Version None)
Quarter: 2010Q4

REPORT INFORMATION
  Report Type: 
  Country: None (occurrence: None)
  Receive Date: 20101129
  Receipt Date: 20100330
  Transmission Date: 20110411
  Serious: No
  Sender: FDA-Public Use
  Company Number: US-PFIZER INC-2010041328

PATIENT
  Sex: Male
  Weight: 58.957 kg

DRUGS (4)
  1. VIAGRA [Suspect]
     Indication: ERECTILE DYSFUNCTION
     Dosage: 50 MG, AS NEEDED
     Route: 048
     Dates: start: 20100322
  2. CLONAZEPAM [Concomitant]
     Indication: RESTLESS LEGS SYNDROME
     Dosage: UNK, HALF PILL IN THE MORNING AND ONE PILL AT NIGHT
  3. CARVEDILOL [Concomitant]
     Dosage: 6.25 MG, UNK
  4. AMLODIPINE [Concomitant]
     Indication: HYPERTENSION
     Dosage: UNK

REACTIONS (2)
  - DRUG EFFECT DELAYED [None]
  - DRUG INEFFECTIVE [None]
